FAERS Safety Report 25019788 (Version 1)
Quarter: 2025Q1

REPORT INFORMATION
  Report Type: Spontaneous
  Country: US (occurrence: US)
  Receive Date: 20250227
  Receipt Date: 20250227
  Transmission Date: 20250409
  Serious: Yes (Other)
  Sender: UCB
  Company Number: US-UCBSA-2024042973

PATIENT
  Sex: Female

DRUGS (1)
  1. KEPPRA XR [Suspect]
     Active Substance: LEVETIRACETAM
     Indication: Seizure

REACTIONS (4)
  - Suicidal ideation [Unknown]
  - Memory impairment [Unknown]
  - Somnolence [Unknown]
  - Confusional state [Unknown]
